FAERS Safety Report 18580143 (Version 2)
Quarter: 2020Q4

REPORT INFORMATION
  Report Type: Report from Study
  Country: US (occurrence: US)
  Receive Date: 20201204
  Receipt Date: 20201215
  Transmission Date: 20210114
  Serious: Yes (Life-Threatening)
  Sender: FDA-Public Use
  Company Number: US-CELGENEUS-USA-20201107603

PATIENT
  Age: 49 Year
  Sex: Female

DRUGS (14)
  1. PROLIA [Concomitant]
     Active Substance: DENOSUMAB
     Indication: OSTEOPOROSIS
     Dosage: 60 MG
     Route: 058
     Dates: start: 201703
  2. CONCERTA [Concomitant]
     Active Substance: METHYLPHENIDATE HYDROCHLORIDE
     Indication: FATIGUE
     Dosage: 54 MG X 1 X 1 DAYS
     Route: 048
     Dates: start: 20200915
  3. OZANIMOD. [Suspect]
     Active Substance: OZANIMOD
     Indication: MULTIPLE SCLEROSIS
     Dosage: 0.23 MG X 1 X 1 DAYS
     Route: 048
     Dates: start: 20200529, end: 20200601
  4. ZYRTEC [Concomitant]
     Active Substance: CETIRIZINE HYDROCHLORIDE
     Indication: SEASONAL ALLERGY
     Dosage: 10 MG X PRN
     Route: 048
     Dates: start: 2010
  5. GABAPENTIN. [Concomitant]
     Active Substance: GABAPENTIN
     Indication: NEUROPATHY PERIPHERAL
     Dosage: 300 MG X 3 X 1 DAYS
     Route: 048
     Dates: start: 20180413
  6. MIRALAX [Concomitant]
     Active Substance: POLYETHYLENE GLYCOL 3350
     Indication: CONSTIPATION
     Dosage: 1 CAPFUL X 1 X 1 DAYS
     Route: 048
     Dates: start: 20171103
  7. ONDANSETRON HCL [Concomitant]
     Active Substance: ONDANSETRON HYDROCHLORIDE
     Indication: VERTIGO
     Dosage: 4 MG X PRN
     Route: 048
     Dates: start: 20200507
  8. ADVIL [Concomitant]
     Active Substance: IBUPROFEN
     Indication: HEADACHE
     Dosage: 200 MG X PRN
     Route: 048
     Dates: start: 2014
  9. NITRO-BID 2% OINTMENT [Concomitant]
     Indication: RAYNAUD^S PHENOMENON
     Dosage: 1 APPLICATION X PRN
     Route: 061
     Dates: start: 20160311
  10. FAMOTIDINE. [Concomitant]
     Active Substance: FAMOTIDINE
     Indication: GASTROOESOPHAGEAL REFLUX DISEASE
     Dosage: 20 MG X PRN
     Route: 048
     Dates: start: 20200507
  11. VITAMIN D3 [Concomitant]
     Active Substance: CHOLECALCIFEROL
     Indication: VITAMIN D DEFICIENCY
     Dosage: 5000 IU X 1 X 1 DAYS
     Route: 048
     Dates: start: 20160526
  12. CYANOCOBALAMIN. [Concomitant]
     Active Substance: CYANOCOBALAMIN
     Indication: SUPPLEMENTATION THERAPY
     Dosage: 1000 UG X 1 X 1 MONTHS
     Route: 030
     Dates: start: 20160914
  13. AMANTADINE. [Concomitant]
     Active Substance: AMANTADINE HYDROCHLORIDE
     Indication: FATIGUE
     Dosage: 100 MG X 2 X 1 DAYS
     Route: 048
     Dates: start: 201912
  14. LATANOPROST 0.005% SOLUTION [Concomitant]
     Indication: PRODUCT USED FOR UNKNOWN INDICATION
     Dosage: 1 GTT X 1 X 1 DAYS
     Route: 031
     Dates: start: 20160922

REACTIONS (1)
  - Squamous cell carcinoma [Recovered/Resolved]

NARRATIVE: CASE EVENT DATE: 20201109
